FAERS Safety Report 7024187-X (Version None)
Quarter: 2010Q4

REPORT INFORMATION
  Report Type: 
  Country: None (occurrence: None)
  Receive Date: 20101001
  Receipt Date: 20100922
  Transmission Date: 20110411
  Serious: Yes (Other)
  Sender: FDA-Public Use
  Company Number: ES-ASTRAZENECA-2010SE44635

PATIENT
  Age: 79 Year
  Sex: Female

DRUGS (1)
  1. SEROQUEL XR [Suspect]
     Indication: DEMENTIA ALZHEIMER'S TYPE
     Route: 048
     Dates: start: 20100519, end: 20100601

REACTIONS (4)
  - DRY MOUTH [None]
  - OROMANDIBULAR DYSTONIA [None]
  - POLYURIA [None]
  - SPEECH DISORDER [None]
